FAERS Safety Report 10170771 (Version 2)
Quarter: 2014Q2

REPORT INFORMATION
  Report Type: Spontaneous
  Country: IT (occurrence: IT)
  Receive Date: 20140514
  Receipt Date: 20140520
  Transmission Date: 20141212
  Serious: Yes (Other)
  Sender: FDA-Public Use
  Company Number: IT-ROCHE-1398747

PATIENT
  Age: 49 Year
  Sex: Female

DRUGS (5)
  1. AVASTIN [Suspect]
     Indication: BREAST CANCER
     Route: 042
     Dates: start: 20131227, end: 20140415
  2. PACLITAXEL [Suspect]
     Indication: BREAST CANCER
     Route: 042
     Dates: start: 20131227, end: 20140415
  3. METFORMIN [Concomitant]
  4. NOVONORM [Concomitant]
  5. PARIET [Concomitant]

REACTIONS (2)
  - Gamma-glutamyltransferase increased [Unknown]
  - Hypertransaminasaemia [Unknown]
